FAERS Safety Report 15755504 (Version 1)
Quarter: 2018Q4

REPORT INFORMATION
  Report Type: Spontaneous
  Country: US (occurrence: US)
  Receive Date: 20181224
  Receipt Date: 20181224
  Transmission Date: 20190205
  Serious: No
  Sender: FDA-Public Use
  Company Number: US-BIOGEN-2018BI00675036

PATIENT
  Sex: Female

DRUGS (1)
  1. TECFIDERA [Suspect]
     Active Substance: DIMETHYL FUMARATE
     Indication: MULTIPLE SCLEROSIS
     Route: 065
     Dates: start: 20130905

REACTIONS (7)
  - Dizziness [Unknown]
  - Flushing [Unknown]
  - Pruritus [Unknown]
  - Vomiting [Unknown]
  - Rash [Unknown]
  - Fluid intake reduced [Unknown]
  - Abdominal pain [Unknown]
